FAERS Safety Report 10026670 (Version 2)
Quarter: 2014Q2

REPORT INFORMATION
  Report Type: Spontaneous
  Country: GB (occurrence: GB)
  Receive Date: 20140321
  Receipt Date: 20140507
  Transmission Date: 20141212
  Serious: Yes (Life-Threatening, Other)
  Sender: FDA-Public Use
  Company Number: GB-ROCHE-1367458

PATIENT
  Sex: Female

DRUGS (2)
  1. MABTHERA [Suspect]
     Indication: NEUROMYELITIS OPTICA
     Route: 042
     Dates: start: 2008
  2. PREDNISOLONE [Concomitant]

REACTIONS (7)
  - Protein-losing gastroenteropathy [Not Recovered/Not Resolved]
  - Encephalitis [Unknown]
  - Neurological decompensation [Unknown]
  - Blood albumin decreased [Unknown]
  - Diarrhoea [Unknown]
  - Oedema peripheral [Unknown]
  - Hypogammaglobulinaemia [Unknown]
